FAERS Safety Report 8378392-0 (Version None)
Quarter: 2012Q2

REPORT INFORMATION
  Report Type: 
  Country: None (occurrence: None)
  Receive Date: 20120522
  Receipt Date: 20120510
  Transmission Date: 20120825
  Serious: Yes (Other)
  Sender: FDA-Public Use
  Company Number: GB-BAUSCH-2012BL003029

PATIENT
  Age: 37 Year
  Sex: Female

DRUGS (1)
  1. DEXAMETHASONE SODIUM PHOSPHATE [Suspect]
     Indication: CORNEAL TRANSPLANT
     Dates: start: 20101103, end: 20101103

REACTIONS (2)
  - CORNEAL GRAFT REJECTION [None]
  - EXPIRED DRUG ADMINISTERED [None]
